FAERS Safety Report 12869289 (Version 1)
Quarter: 2016Q4

REPORT INFORMATION
  Report Type: Spontaneous
  Country: US (occurrence: US)
  Receive Date: 20161020
  Receipt Date: 20161020
  Transmission Date: 20170207
  Serious: Yes (Other)
  Sender: FDA-Public Use
  Company Number: None

PATIENT
  Age: 23 Year
  Sex: Female
  Weight: 49.94 kg

DRUGS (1)
  1. PARAGARD T 380A [Suspect]
     Active Substance: COPPER

REACTIONS (6)
  - Emotional distress [None]
  - Muscle spasms [None]
  - Pregnancy with contraceptive device [None]
  - Abortion spontaneous [None]
  - Complication of device insertion [None]
  - Haemorrhage [None]

NARRATIVE: CASE EVENT DATE: 20161019
